FAERS Safety Report 26164675 (Version 1)
Quarter: 2025Q4

REPORT INFORMATION
  Report Type: Spontaneous
  Country: US (occurrence: US)
  Receive Date: 20251216
  Receipt Date: 20251216
  Transmission Date: 20260117
  Serious: No
  Sender: SANOFI AVENTIS
  Company Number: US-SANOFI-02751042

PATIENT
  Age: 14 Year
  Sex: Female

DRUGS (2)
  1. DUPIXENT [Suspect]
     Active Substance: DUPILUMAB
     Indication: Eczema
  2. REMICADE [Concomitant]
     Active Substance: INFLIXIMAB

REACTIONS (2)
  - Fatigue [Unknown]
  - Product storage error [Unknown]

NARRATIVE: CASE EVENT DATE: 20251201
